FAERS Safety Report 4275891-8 (Version None)
Quarter: 2004Q1

REPORT INFORMATION
  Report Type: 
  Country: None (occurrence: None)
  Receive Date: 20040121
  Receipt Date: 20030224
  Transmission Date: 20041129
  Serious: No
  Sender: FDA-Public Use
  Company Number: US-GLAXOSMITHKLINE-A0397828A

PATIENT
  Age: 19 Year
  Sex: Female

DRUGS (2)
  1. VALTREX [Suspect]
     Dosage: 500MG PER DAY
     Route: 048
     Dates: start: 19980101
  2. TETRACYCLINE [Suspect]
     Route: 065

REACTIONS (4)
  - BLOOD IRON DECREASED [None]
  - FEELING ABNORMAL [None]
  - FUNGAL INFECTION [None]
  - WHITE BLOOD CELL COUNT DECREASED [None]
